FAERS Safety Report 9237567 (Version 1)
Quarter: 2013Q2

REPORT INFORMATION
  Report Type: Spontaneous
  Country: CA (occurrence: CA)
  Receive Date: 20130418
  Receipt Date: 20130418
  Transmission Date: 20140414
  Serious: Yes (Hospitalization)
  Sender: FDA-Public Use
  Company Number: CA-AMGEN-CANSP2013026169

PATIENT
  Age: 76 Year
  Sex: Male

DRUGS (5)
  1. ENBREL [Suspect]
     Indication: PSORIASIS
     Dosage: 50 MG/ML, UNK
     Dates: start: 20110208, end: 201301
  2. METHOTREXATE [Concomitant]
     Dosage: UNK
  3. TIAZAC                             /00489702/ [Concomitant]
     Dosage: UNK
  4. ADVAIR [Concomitant]
     Dosage: UNK
  5. FOLIC ACID [Concomitant]
     Dosage: UNK

REACTIONS (1)
  - Hepatic cancer [Not Recovered/Not Resolved]
